FAERS Safety Report 8494122-6 (Version None)
Quarter: 2012Q3

REPORT INFORMATION
  Report Type: 
  Country: None (occurrence: None)
  Receive Date: 20120702
  Receipt Date: 20120702
  Transmission Date: 20120928
  Serious: Yes (Hospitalization)
  Sender: FDA-Public Use
  Company Number: None

PATIENT
  Sex: Male
  Weight: 95.2554 kg

DRUGS (1)
  1. MELOXICAM [Suspect]
     Indication: BURSITIS
     Dosage: ONE TABLET EVERY DAY BY MOUTH
     Route: 048
     Dates: start: 20120430, end: 20120513

REACTIONS (4)
  - MELAENA [None]
  - GASTRIC ULCER [None]
  - FAECES DISCOLOURED [None]
  - IRON DEFICIENCY ANAEMIA [None]
